FAERS Safety Report 11967359 (Version 1)
Quarter: 2016Q1

REPORT INFORMATION
  Report Type: Spontaneous
  Country: PL (occurrence: PL)
  Receive Date: 20160127
  Receipt Date: 20160127
  Transmission Date: 20160526
  Serious: Yes (Hospitalization, Other)
  Sender: FDA-Public Use
  Company Number: PL-ELI_LILLY_AND_COMPANY-PL201512005348

PATIENT
  Age: 24 Year
  Sex: Male

DRUGS (9)
  1. HUMULIN R [Suspect]
     Active Substance: INSULIN HUMAN
     Indication: TYPE 1 DIABETES MELLITUS
     Dosage: UNK, UNKNOWN
     Route: 065
     Dates: start: 201501, end: 201506
  2. HUMALOG [Suspect]
     Active Substance: INSULIN LISPRO
     Dosage: 2 U, QD
     Route: 058
     Dates: start: 201507
  3. MEMOTROPIL [Concomitant]
     Dosage: 1200 MG, UNKNOWN
     Route: 048
     Dates: start: 2012
  4. IPP                                /01263204/ [Concomitant]
     Dosage: 40 MG, UNKNOWN
     Route: 048
  5. HUMALOG [Suspect]
     Active Substance: INSULIN LISPRO
     Dosage: 2 U, EACH EVENING
     Route: 058
     Dates: start: 201507
  6. HEPATIL [Concomitant]
     Dosage: 40 MG, UNKNOWN
     Route: 048
  7. HUMALOG [Suspect]
     Active Substance: INSULIN LISPRO
     Dosage: 8 U, QD
     Route: 058
     Dates: start: 201507
  8. HUMALOG [Suspect]
     Active Substance: INSULIN LISPRO
     Indication: TYPE 1 DIABETES MELLITUS
     Dosage: 3 U, EACH MORNING
     Route: 058
     Dates: start: 201507
  9. HUMULIN N [Suspect]
     Active Substance: INSULIN HUMAN
     Indication: TYPE 1 DIABETES MELLITUS
     Dosage: 4 U, EACH EVENING
     Route: 065
     Dates: start: 201507

REACTIONS (5)
  - Decreased appetite [Unknown]
  - Hyperglycaemia [Not Recovered/Not Resolved]
  - Hepatitis C [Not Recovered/Not Resolved]
  - Nausea [Unknown]
  - Upper respiratory tract infection [Unknown]

NARRATIVE: CASE EVENT DATE: 201506
